FAERS Safety Report 23203527 (Version 1)
Quarter: 2023Q4

REPORT INFORMATION
  Report Type: Spontaneous
  Country: FI (occurrence: FI)
  Receive Date: 20231120
  Receipt Date: 20231120
  Transmission Date: 20240110
  Serious: Yes (Disabling, Other)
  Sender: FDA-Public Use
  Company Number: None

PATIENT

DRUGS (6)
  1. BUPROPION HYDROCHLORIDE [Suspect]
     Active Substance: BUPROPION HYDROCHLORIDE
     Indication: Product used for unknown indication
     Dosage: UNK UNK, QD, 150-300,MG,DAILY
     Route: 065
     Dates: start: 201704, end: 201704
  2. VALDOXAN [Suspect]
     Active Substance: AGOMELATINE
     Indication: Stress
     Dosage: 50 MG, QD
     Route: 048
     Dates: start: 20170120, end: 20170415
  3. AMLODIPINE [Concomitant]
     Active Substance: AMLODIPINE BESYLATE
     Indication: Product used for unknown indication
     Dosage: UNK
     Route: 065
     Dates: start: 2010
  4. ATORVASTATIN [Concomitant]
     Active Substance: ATORVASTATIN
     Indication: Product used for unknown indication
     Dosage: UNK
     Route: 065
     Dates: start: 2010
  5. QUETIAPINE FUMARATE [Concomitant]
     Active Substance: QUETIAPINE FUMARATE
     Indication: Product used for unknown indication
     Dosage: UNK
     Route: 065
     Dates: start: 201705
  6. CIPRALEX [Concomitant]
     Active Substance: ESCITALOPRAM OXALATE
     Indication: Product used for unknown indication
     Dosage: UNK
     Route: 065
     Dates: start: 201705

REACTIONS (37)
  - Heart rate increased [Recovered/Resolved with Sequelae]
  - Dry mouth [Recovered/Resolved with Sequelae]
  - Apathy [Recovered/Resolved with Sequelae]
  - Anhidrosis [Recovered/Resolved with Sequelae]
  - Hypoaesthesia [Recovered/Resolved with Sequelae]
  - Orgasmic sensation decreased [Recovered/Resolved with Sequelae]
  - Depersonalisation/derealisation disorder [Recovered/Resolved with Sequelae]
  - Ejaculation failure [Recovered/Resolved with Sequelae]
  - Muscle atrophy [Recovered/Resolved with Sequelae]
  - Constipation [Recovered/Resolved with Sequelae]
  - Arthralgia [Recovered/Resolved with Sequelae]
  - Confusional state [Recovered/Resolved with Sequelae]
  - Testicular pain [Recovered/Resolved with Sequelae]
  - Autonomic nervous system imbalance [Recovered/Resolved with Sequelae]
  - Bedridden [Recovered/Resolved with Sequelae]
  - Insomnia [Recovered/Resolved with Sequelae]
  - Semen volume decreased [Recovered/Resolved with Sequelae]
  - Depression [Recovered/Resolved with Sequelae]
  - Temperature intolerance [Recovered/Resolved with Sequelae]
  - Dyspepsia [Recovered/Resolved with Sequelae]
  - Feeling abnormal [Recovered/Resolved with Sequelae]
  - Ejaculation disorder [Recovered/Resolved with Sequelae]
  - Emotional poverty [Recovered/Resolved with Sequelae]
  - Irregular sleep wake rhythm disorder [Recovered/Resolved with Sequelae]
  - Libido decreased [Recovered/Resolved with Sequelae]
  - Temperature regulation disorder [Recovered/Resolved with Sequelae]
  - Anorgasmia [Recovered/Resolved with Sequelae]
  - Panic attack [Recovered/Resolved with Sequelae]
  - Anxiety [Recovered/Resolved with Sequelae]
  - Tinnitus [Recovered/Resolved with Sequelae]
  - Genital hypoaesthesia [Recovered/Resolved with Sequelae]
  - Decreased appetite [Recovered/Resolved with Sequelae]
  - Dry eye [Recovered/Resolved with Sequelae]
  - Abdominal pain [Recovered/Resolved with Sequelae]
  - Stupor [Recovered/Resolved with Sequelae]
  - Erectile dysfunction [Recovered/Resolved with Sequelae]
  - Antidepressant discontinuation syndrome [Recovered/Resolved with Sequelae]

NARRATIVE: CASE EVENT DATE: 20170101
